FAERS Safety Report 8021082-4 (Version None)
Quarter: 2011Q4

REPORT INFORMATION
  Report Type: 
  Country: None (occurrence: None)
  Receive Date: 20111229
  Receipt Date: 20111229
  Transmission Date: 20120403
  Serious: Yes (Other)
  Sender: FDA-Public Use
  Company Number: None

PATIENT
  Sex: Male
  Weight: 92.9874 kg

DRUGS (1)
  1. DOXYCYLINE 100MG WATSON LABS [Suspect]
     Indication: BACTERIAL INFECTION
     Dosage: 100 MG 20 TAB TAKE TWICE A DAY
     Dates: start: 20090708

REACTIONS (1)
  - TOOTH FRACTURE [None]
